FAERS Safety Report 5480617-6 (Version None)
Quarter: 2007Q4

REPORT INFORMATION
  Report Type: 
  Country: None (occurrence: None)
  Receive Date: 20071009
  Receipt Date: 20070927
  Transmission Date: 20080405
  Serious: Yes (Other)
  Sender: FDA-Public Use
  Company Number: PHNR2006AU01372

PATIENT
  Sex: Male

DRUGS (1)
  1. STALEVO 100 [Suspect]
     Route: 048

REACTIONS (3)
  - CHOKING [None]
  - PHARMACEUTICAL PRODUCT COMPLAINT [None]
  - RESPIRATORY ARREST [None]
